FAERS Safety Report 13159308 (Version 3)
Quarter: 2017Q3

REPORT INFORMATION
  Report Type: Spontaneous
  Country: JP (occurrence: JP)
  Receive Date: 20170127
  Receipt Date: 20170908
  Transmission Date: 20171127
  Serious: Yes (Other)
  Sender: FDA-Public Use
  Company Number: JP-GILEAD-2017-0254385

PATIENT
  Age: 80 Year
  Sex: Male

DRUGS (4)
  1. SOVALDI [Suspect]
     Active Substance: SOFOSBUVIR
     Indication: CHRONIC HEPATITIS C
     Dosage: UNK
     Route: 048
     Dates: start: 20160801, end: 20161023
  2. AMLODIPINE [Concomitant]
     Active Substance: AMLODIPINE BESYLATE
     Dosage: 1 DF, MORNING
  3. REBETOL [Concomitant]
     Active Substance: RIBAVIRIN
     Indication: CHRONIC HEPATITIS C
     Dosage: 800 MG, DIVIDED INTO AFTER BREAKFAST AND DINNER
     Route: 065
     Dates: start: 20160801, end: 20161023
  4. NESINA [Concomitant]
     Active Substance: ALOGLIPTIN BENZOATE
     Dosage: 1 DF, MORNING

REACTIONS (2)
  - Hepatocellular carcinoma [Not Recovered/Not Resolved]
  - Ascites [Unknown]

NARRATIVE: CASE EVENT DATE: 20161129
